FAERS Safety Report 13663746 (Version 1)
Quarter: 2017Q2

REPORT INFORMATION
  Report Type: Spontaneous
  Country: US (occurrence: US)
  Receive Date: 20170616
  Receipt Date: 20170616
  Transmission Date: 20170830
  Serious: No
  Sender: FDA-Public Use
  Company Number: None

PATIENT
  Sex: Male

DRUGS (2)
  1. CAPECITABINE 150MG ACCORD [Suspect]
     Active Substance: CAPECITABINE
     Indication: METASTASIS
     Dosage: 1150MG EVERY MORNING AND 1500MG TWICE DAILY FOR 14 DAYS ON EVERY 21 DAY CYCLE ORALLY
     Route: 048
     Dates: start: 20170601
  2. CAPECITABINE 500MG ACCORD [Suspect]
     Active Substance: CAPECITABINE
     Indication: OESOPHAGEAL CARCINOMA
     Dosage: 1150MG EVERY MORNING AND 1500MG TWICE DAILY FOR 14 DAYS ON EVERY 21 DAY CYCLE ORALLY
     Route: 048
     Dates: start: 20170601

REACTIONS (2)
  - Skin exfoliation [None]
  - Oedema peripheral [None]
